FAERS Safety Report 7801706-4 (Version None)
Quarter: 2011Q4

REPORT INFORMATION
  Report Type: 
  Country: None (occurrence: None)
  Receive Date: 20111007
  Receipt Date: 20111003
  Transmission Date: 20120403
  Serious: Yes (Death, Life-Threatening, Hospitalization, Other)
  Sender: FDA-Public Use
  Company Number: JP-ELI_LILLY_AND_COMPANY-JP201109007726

PATIENT
  Sex: Male
  Weight: 80 kg

DRUGS (7)
  1. ALIMTA [Suspect]
     Indication: PLEURAL MESOTHELIOMA MALIGNANT
     Dosage: 750 MG, EVERY 3 WEEKS
     Route: 042
     Dates: start: 20090312, end: 20090924
  2. CISPLATIN [Concomitant]
     Indication: PLEURAL MESOTHELIOMA MALIGNANT
     Dosage: 100 MG, EVERY 3 WEEKS
     Route: 042
     Dates: start: 20090312, end: 20090924
  3. AMLODIPINE [Concomitant]
     Dosage: 10 MG, QD
     Route: 048
     Dates: start: 20090604, end: 20100419
  4. AMLODIPINE [Concomitant]
     Indication: HYPERTENSION
     Dosage: 5 MG, QD
     Route: 048
     Dates: start: 20090521, end: 20090604
  5. METHYCOBAL [Concomitant]
     Indication: PROPHYLAXIS
     Dosage: 500 UG, UNK
     Route: 030
     Dates: start: 20090226, end: 20090910
  6. PANVITAN [Concomitant]
     Indication: PROPHYLAXIS
     Dosage: 1 G, QD
     Route: 048
     Dates: start: 20090226, end: 20091119
  7. CALBLOCK [Concomitant]
     Indication: HYPERTENSION
     Dosage: 8 MG, QD
     Route: 048
     Dates: start: 20090618, end: 20100419

REACTIONS (2)
  - NEPHROTIC SYNDROME [None]
  - NEOPLASM PROGRESSION [None]
